FAERS Safety Report 10441781 (Version 3)
Quarter: 2014Q4

REPORT INFORMATION
  Report Type: Spontaneous
  Country: US (occurrence: US)
  Receive Date: 20140908
  Receipt Date: 20141027
  Transmission Date: 20150528
  Serious: Yes (Death, Hospitalization)
  Sender: FDA-Public Use
  Company Number: US-PFIZER INC-2014245933

PATIENT
  Age: 61 Year
  Sex: Male

DRUGS (2)
  1. XALKORI [Suspect]
     Active Substance: CRIZOTINIB
     Dosage: 250 MG, 2X/DAY
     Route: 048
     Dates: start: 201405, end: 201408
  2. XALKORI [Suspect]
     Active Substance: CRIZOTINIB
     Indication: NON-SMALL CELL LUNG CANCER
     Dosage: 250 MG, 2X/DAY
     Route: 048
     Dates: start: 20120312, end: 201305

REACTIONS (6)
  - Respiratory failure [Fatal]
  - Non-small cell lung cancer [Unknown]
  - Disease progression [Unknown]
  - Product use issue [Unknown]
  - General physical health deterioration [Unknown]
  - Pneumonia [Unknown]
